FAERS Safety Report 10022933 (Version 1)
Quarter: 2014Q1

REPORT INFORMATION
  Report Type: Spontaneous
  Country: US (occurrence: US)
  Receive Date: 20140319
  Receipt Date: 20140319
  Transmission Date: 20141002
  Serious: No
  Sender: FDA-Public Use
  Company Number: US-SA-2014SA016457

PATIENT
  Age: 40 Year
  Sex: Male

DRUGS (1)
  1. NASACORT ALLERGY [Suspect]
     Indication: NASAL CONGESTION
     Dosage: PATIENT TAKES 2 SPERY
     Route: 065
     Dates: start: 20140204, end: 20140204

REACTIONS (2)
  - Dyspnoea [Unknown]
  - Drug ineffective [Unknown]
